FAERS Safety Report 22781213 (Version 4)
Quarter: 2024Q1

REPORT INFORMATION
  Report Type: Report from Study
  Country: US (occurrence: US)
  Receive Date: 20230803
  Receipt Date: 20240107
  Transmission Date: 20240410
  Serious: Yes (Hospitalization, Other)
  Sender: FDA-Public Use
  Company Number: US-ABBVIE-5281073

PATIENT
  Sex: Female

DRUGS (5)
  1. VENCLEXTA [Suspect]
     Active Substance: VENETOCLAX
     Indication: Acute myeloid leukaemia
     Dosage: FORM STRENGTH: 100MG?WITH FOOD AND A FULL GLASS OF WATER?TAKE 1 TABLET BY MOUTH DAILY WITH FOOD A...
     Route: 048
     Dates: end: 20230514
  2. VENCLEXTA [Suspect]
     Active Substance: VENETOCLAX
     Indication: Acute myeloid leukaemia
     Dosage: FORM STRENGTH: 100MG ,WITH FOOD AND A FULL GLASS OF WATER
     Route: 048
  3. VENCLEXTA [Suspect]
     Active Substance: VENETOCLAX
     Indication: Acute myeloid leukaemia
     Dosage: FORM STRENGTH: 100 MILLIGRAM?TAKE 1 TABLET BY MOUTH DAILY WITH FOOD AND WATER FOR 7 DAYS ON DAYS ...
     Route: 048
  4. VENCLEXTA [Suspect]
     Active Substance: VENETOCLAX
     Indication: Acute myeloid leukaemia
     Dosage: FORM STRENGTH: 100MG?FIRST ADMIN DATE: 2023
     Route: 048
     Dates: end: 20230731
  5. VIDAZA [Concomitant]
     Active Substance: AZACITIDINE
     Indication: Product used for unknown indication

REACTIONS (18)
  - Transfusion [Recovering/Resolving]
  - Alopecia [Recovering/Resolving]
  - Hair texture abnormal [Unknown]
  - Skin exfoliation [Recovering/Resolving]
  - Dry skin [Recovering/Resolving]
  - Nail growth abnormal [Not Recovered/Not Resolved]
  - Laboratory test abnormal [Unknown]
  - Dry eye [Unknown]
  - Tongue disorder [Unknown]
  - Cellulitis [Recovering/Resolving]
  - Platelet transfusion [Recovering/Resolving]
  - Full blood count decreased [Not Recovered/Not Resolved]
  - Decreased appetite [Recovering/Resolving]
  - Vomiting [Recovering/Resolving]
  - Nausea [Recovering/Resolving]
  - Dysgeusia [Recovering/Resolving]
  - Fatigue [Recovering/Resolving]
  - Nail disorder [Not Recovered/Not Resolved]

NARRATIVE: CASE EVENT DATE: 20230101
